FAERS Safety Report 7911462-7 (Version None)
Quarter: 2011Q4

REPORT INFORMATION
  Report Type: 
  Country: None (occurrence: None)
  Receive Date: 20111114
  Receipt Date: 20111104
  Transmission Date: 20120403
  Serious: Yes (Life-Threatening)
  Sender: FDA-Public Use
  Company Number: FR-BRISTOL-MYERS SQUIBB COMPANY-15965148

PATIENT
  Age: 40 Year
  Sex: Male
  Weight: 68 kg

DRUGS (7)
  1. CISPLATIN [Suspect]
     Indication: OESOPHAGEAL CARCINOMA
     Dosage: 72.5MG
     Route: 042
     Dates: start: 20110117, end: 20110214
  2. FLUOROURACIL [Suspect]
     Indication: OESOPHAGEAL CARCINOMA
     Dosage: 1,1 CYCLICAL 3250MG
     Route: 042
     Dates: start: 20110117, end: 20110214
  3. CETUXIMAB [Suspect]
     Indication: OESOPHAGEAL CARCINOMA
     Dosage: 435 MG CYCLICAL
     Route: 042
     Dates: start: 20110111, end: 20110214
  4. DOXYCYCLINE [Concomitant]
     Indication: RASH
     Dates: start: 20110101
  5. PREDNISOLONE [Concomitant]
     Dosage: FOLLOWING RADIO CHEMOTHERAPY
     Dates: start: 20110101
  6. ACETAMINOPHEN AND CODEINE PHOSPHATE [Concomitant]
     Indication: ANALGESIC THERAPY
     Dosage: TABS
  7. RANITIDINE [Concomitant]
     Indication: DYSPHAGIA

REACTIONS (5)
  - STREPTOCOCCUS TEST POSITIVE [None]
  - CANDIDA TEST POSITIVE [None]
  - SEPSIS [None]
  - ENCEPHALOPATHY [None]
  - ANASTOMOTIC FISTULA [None]
